FAERS Safety Report 4459439-0 (Version None)
Quarter: 2004Q3

REPORT INFORMATION
  Report Type: 
  Country: None (occurrence: None)
  Receive Date: 20040927
  Receipt Date: 20040917
  Transmission Date: 20050211
  Serious: Yes (Hospitalization)
  Sender: FDA-Public Use
  Company Number: ZA-GLAXOSMITHKLINE-B0346007A

PATIENT
  Age: 47 Year
  Sex: Male

DRUGS (8)
  1. CEFUROXIME AXETIL [Suspect]
     Indication: CELLULITIS
     Dosage: 500U TWICE PER DAY
     Route: 048
     Dates: start: 20040915
  2. LAMOTRIGINE [Concomitant]
     Indication: EPILEPSY
  3. CARBAMAZEPINE [Concomitant]
     Indication: EPILEPSY
  4. PARACETAMOL [Concomitant]
  5. IBUPROFEN [Concomitant]
  6. CODEINE [Concomitant]
  7. DEXTROPROPOXYPHEN [Concomitant]
  8. PEMOLINE [Concomitant]

REACTIONS (2)
  - DISORIENTATION [None]
  - LOSS OF CONSCIOUSNESS [None]
